FAERS Safety Report 8654414 (Version 2)
Quarter: 2015Q2

REPORT INFORMATION
  Report Type: Spontaneous
  Country: US (occurrence: US)
  Receive Date: 20120709
  Receipt Date: 20150519
  Transmission Date: 20150821
  Serious: Yes (Hospitalization)
  Sender: FDA-Public Use
  Company Number: US-BAYER-2012-067522

PATIENT
  Age: 35 Year
  Sex: Female
  Weight: 114.74 kg

DRUGS (2)
  1. MIRENA [Concomitant]
     Active Substance: LEVONORGESTREL
  2. YAZ [Suspect]
     Active Substance: DROSPIRENONE\ETHINYL ESTRADIOL
     Dosage: UNK
     Dates: start: 201003, end: 20100619

REACTIONS (7)
  - Pulmonary embolism [None]
  - Injury [None]
  - Anxiety [None]
  - Emotional distress [None]
  - Anhedonia [None]
  - General physical health deterioration [None]
  - Pain [None]

NARRATIVE: CASE EVENT DATE: 20100619
